FAERS Safety Report 9184534 (Version 1)
Quarter: 2013Q1

REPORT INFORMATION
  Report Type: Spontaneous
  Country: IN (occurrence: IN)
  Receive Date: 20130322
  Receipt Date: 20130322
  Transmission Date: 20140127
  Serious: Yes (Death)
  Sender: FDA-Public Use
  Company Number: PHHY2011IN113178

PATIENT
  Sex: Female

DRUGS (3)
  1. GLIVEC [Suspect]
     Indication: CHRONIC MYELOID LEUKAEMIA
     Dosage: 200 MG, DAILY
     Route: 048
  2. GLIVEC [Suspect]
     Dosage: 400 MG,DAILY
     Route: 048
     Dates: start: 20121224
  3. ALPRAX [Concomitant]
     Indication: MENTAL DISORDER
     Dosage: 0.25 MG, QD
     Route: 048

REACTIONS (1)
  - Mental disorder [Fatal]
